FAERS Safety Report 6115622-X (Version None)
Quarter: 2009Q1

REPORT INFORMATION
  Report Type: 
  Country: None (occurrence: None)
  Receive Date: 20090313
  Receipt Date: 20090305
  Transmission Date: 20090719
  Serious: Yes (Other)
  Sender: FDA-Public Use
  Company Number: PHHY2008BR21729

PATIENT
  Age: 78 Year
  Sex: Male
  Weight: 68 kg

DRUGS (4)
  1. EXELON [Suspect]
     Indication: DEMENTIA ALZHEIMER'S TYPE
     Dosage: 18 MG/5CM2, UNK
     Route: 062
     Dates: start: 20080913
  2. MEMANTINE HCL [Concomitant]
     Indication: PARKINSON'S DISEASE
     Dosage: 2 TABLETS DAILY
  3. CARBIDOPA + LEVODOPA [Concomitant]
     Indication: PARKINSON'S DISEASE
     Dosage: UNK
     Route: 048
  4. NEULEPTIL [Concomitant]
     Dosage: 4 DROPS AT NIGHT

REACTIONS (8)
  - ABDOMINAL DISTENSION [None]
  - ASTHENIA [None]
  - DIARRHOEA [None]
  - FALL [None]
  - GASTROENTERITIS [None]
  - PNEUMONIA [None]
  - PYREXIA [None]
  - VOMITING [None]
